FAERS Safety Report 19843021 (Version 1)
Quarter: 2021Q3

REPORT INFORMATION
  Report Type: Other
  Country: SA (occurrence: SA)
  Receive Date: 20210917
  Receipt Date: 20210917
  Transmission Date: 20211014
  Serious: Yes (Other)
  Sender: FDA-Public Use
  Company Number: SA-SAPTALIS PHARMACEUTICALS,LLC-000113

PATIENT
  Age: 25 Year
  Sex: Female

DRUGS (2)
  1. TRIAMCINOLONE ACETONIDE. [Suspect]
     Active Substance: TRIAMCINOLONE ACETONIDE
     Indication: EXUDATIVE RETINOPATHY
     Dosage: 2 INTRAVITREAL INJECTIONS
     Route: 031
  2. OZURDEX [Suspect]
     Active Substance: DEXAMETHASONE
     Indication: EXUDATIVE RETINOPATHY
     Dosage: ONE DEXAMETHASONE IMPLANT (OZURDEX) INJECTION

REACTIONS (4)
  - Intraocular pressure increased [Unknown]
  - Retinal detachment [Unknown]
  - Treatment failure [Unknown]
  - Product residue present [Unknown]
